FAERS Safety Report 5615435-9 (Version None)
Quarter: 2008Q1

REPORT INFORMATION
  Report Type: 
  Country: None (occurrence: None)
  Receive Date: 20080206
  Receipt Date: 20080124
  Transmission Date: 20080703
  Serious: No
  Sender: FDA-Public Use
  Company Number: CA-ELI_LILLY_AND_COMPANY-CA200710007364

PATIENT
  Age: 78 Year
  Sex: Male

DRUGS (9)
  1. FORTEO [Suspect]
     Indication: OSTEOPOROSIS
     Dosage: 20 UG, DAILY (1/D)
     Route: 058
     Dates: start: 20061101
  2. PANTOLOC                           /01263201/ [Concomitant]
  3. COUMADIN [Concomitant]
  4. TESTOSTERONE [Concomitant]
     Dosage: 100 MG, OTHER
     Route: 030
  5. CRESTOR [Concomitant]
  6. MOXON [Concomitant]
     Dosage: 500 MG, UNK
  7. FLOMAX [Concomitant]
     Dosage: 0.4 MG, UNK
  8. PROSCAR [Concomitant]
     Dosage: 5 MG, UNK
  9. THYROID PREPARATIONS [Concomitant]

REACTIONS (1)
  - KNEE ARTHROPLASTY [None]
